FAERS Safety Report 15350608 (Version 4)
Quarter: 2018Q4

REPORT INFORMATION
  Report Type: Spontaneous
  Country: US (occurrence: US)
  Receive Date: 20180905
  Receipt Date: 20181003
  Transmission Date: 20190204
  Serious: Yes (Hospitalization)
  Sender: FDA-Public Use
  Company Number: US-PHARMING-PHAUS2018000576

PATIENT

DRUGS (24)
  1. STERILE WATER [Concomitant]
     Active Substance: WATER
  2. EPINEPHRINE. [Concomitant]
     Active Substance: EPINEPHRINE
  3. VITAMIN B12 [Concomitant]
     Active Substance: CYANOCOBALAMIN
  4. ZOLPIDEM [Concomitant]
     Active Substance: ZOLPIDEM\ZOLPIDEM TARTRATE
  5. RANITIDINE. [Concomitant]
     Active Substance: RANITIDINE
  6. BENADRYL [Concomitant]
     Active Substance: DIPHENHYDRAMINE HYDROCHLORIDE
  7. FOLIC ACID. [Concomitant]
     Active Substance: FOLIC ACID
  8. SYNTHROID [Concomitant]
     Active Substance: LEVOTHYROXINE SODIUM
  9. ASPIRIN. [Concomitant]
     Active Substance: ASPIRIN
  10. SODIUM CHLORIDE. [Concomitant]
     Active Substance: SODIUM CHLORIDE
  11. IBUPROFEN. [Concomitant]
     Active Substance: IBUPROFEN
  12. BACLOFEN. [Concomitant]
     Active Substance: BACLOFEN
  13. GABAPENTIN. [Concomitant]
     Active Substance: GABAPENTIN
  14. TYLENOL [Concomitant]
     Active Substance: ACETAMINOPHEN
  15. PERCOCET [Concomitant]
     Active Substance: ACETAMINOPHEN\OXYCODONE HYDROCHLORIDE
  16. NAPROXEN. [Concomitant]
     Active Substance: NAPROXEN
  17. RUCONEST [Suspect]
     Active Substance: HUMAN C1-ESTERASE INHIBITOR
     Indication: HEREDITARY ANGIOEDEMA
     Dosage: 4200 IU, AS NEEDED
     Route: 042
     Dates: start: 20171101
  18. METHOTREXATE. [Concomitant]
     Active Substance: METHOTREXATE
  19. PRAVASTATIN. [Concomitant]
     Active Substance: PRAVASTATIN
  20. CALCIUM + D3 [Concomitant]
     Active Substance: CALCIUM\CHOLECALCIFEROL
  21. METOPROLOL TARTRATE. [Concomitant]
     Active Substance: METOPROLOL TARTRATE
  22. MULTIVITAMIN [Concomitant]
     Active Substance: VITAMINS
  23. POTASSIUM [Concomitant]
     Active Substance: POTASSIUM
  24. LASIX [Concomitant]
     Active Substance: FUROSEMIDE

REACTIONS (2)
  - Ill-defined disorder [Recovering/Resolving]
  - Peritonsillar abscess [Recovering/Resolving]

NARRATIVE: CASE EVENT DATE: 20180828
